FAERS Safety Report 4553447-7 (Version None)
Quarter: 2005Q1

REPORT INFORMATION
  Report Type: 
  Country: None (occurrence: None)
  Receive Date: 20050112
  Receipt Date: 20041222
  Transmission Date: 20050727
  Serious: Yes (Life-Threatening, Hospitalization)
  Sender: FDA-Public Use
  Company Number: JP_030901754

PATIENT
  Age: 21 Year
  Sex: Male
  Weight: 56 kg

DRUGS (10)
  1. ZYPREXA [Suspect]
     Indication: SCHIZOPHRENIA
     Dosage: 10 MG DAY
     Route: 048
     Dates: start: 20030826, end: 20030904
  2. AMOBAN                (ZOPICLONE) [Concomitant]
  3. DIAZEPAM [Concomitant]
  4. CEFAZOLIN SODIUM [Concomitant]
  5. LEVOFLOXACIN [Concomitant]
  6. PERDIPIN LA (NICARDIPINE HYDROCHLORIDE) [Concomitant]
  7. HEPARIN [Concomitant]
  8. LASIX [Concomitant]
  9. MANNITOL [Concomitant]
  10. EPOGEN [Concomitant]

REACTIONS (9)
  - ALANINE AMINOTRANSFERASE INCREASED [None]
  - ASPARTATE AMINOTRANSFERASE INCREASED [None]
  - BLOOD CREATINE PHOSPHOKINASE INCREASED [None]
  - BLOOD LACTATE DEHYDROGENASE INCREASED [None]
  - DIALYSIS [None]
  - PULMONARY OEDEMA [None]
  - PYREXIA [None]
  - RESPIRATORY FAILURE [None]
  - RHABDOMYOLYSIS [None]
